FAERS Safety Report 9228945 (Version 1)
Quarter: 2013Q2

REPORT INFORMATION
  Report Type: Spontaneous
  Country: MX (occurrence: MX)
  Receive Date: 20130412
  Receipt Date: 20130412
  Transmission Date: 20140414
  Serious: Yes (Death)
  Sender: FDA-Public Use
  Company Number: MX-ACTELION-A-CH2013-81940

PATIENT
  Age: 39 Year
  Sex: Male

DRUGS (4)
  1. TRACLEER [Suspect]
     Indication: PULMONARY ARTERIAL HYPERTENSION
     Dosage: UNK
     Route: 048
     Dates: end: 20130410
  2. HYDROCHLOROTHIAZIDE [Concomitant]
  3. SILDENAFIL [Concomitant]
     Dosage: 25 MG, TID
     Route: 048
  4. OXYGEN [Concomitant]

REACTIONS (1)
  - Death [Fatal]
